FAERS Safety Report 18213553 (Version 2)
Quarter: 2020Q3

REPORT INFORMATION
  Report Type: Spontaneous
  Country: US (occurrence: US)
  Receive Date: 20200831
  Receipt Date: 20200831
  Transmission Date: 20201103
  Serious: No
  Sender: FDA-Public Use
  Company Number: US-PFIZER INC-2020334056

PATIENT
  Age: 65 Year
  Sex: Female
  Weight: 62.59 kg

DRUGS (3)
  1. VITAMIN B12 [Concomitant]
     Active Substance: CYANOCOBALAMIN
     Dosage: UNK
  2. DAILY VITE [ASCORBIC ACID;CALCIUM PANTOTHENATE;COLECALCIFEROL;CYANOCOB [Concomitant]
     Dosage: UNK
  3. IBRANCE [Suspect]
     Active Substance: PALBOCICLIB
     Indication: MALIGNANT CONNECTIVE TISSUE NEOPLASM
     Dosage: 125 MG, CYCLIC (DAILY, 3 WEEKS ON, 1 WEEKS OFF)
     Route: 048
     Dates: start: 202006

REACTIONS (6)
  - White blood cell count decreased [Unknown]
  - Fatigue [Unknown]
  - Blood count abnormal [Unknown]
  - Stomatitis [Unknown]
  - Off label use [Unknown]
  - Product use in unapproved indication [Unknown]
